FAERS Safety Report 8011126-8 (Version None)
Quarter: 2011Q4

REPORT INFORMATION
  Report Type: 
  Country: None (occurrence: None)
  Receive Date: 20111228
  Receipt Date: 20111130
  Transmission Date: 20120403
  Serious: Yes (Death)
  Sender: FDA-Public Use
  Company Number: JP-ROCHE-1025124

PATIENT
  Sex: Female

DRUGS (9)
  1. CEFADROXIL [Concomitant]
     Dates: start: 20090611, end: 20110613
  2. RANIBIZUMAB [Suspect]
     Indication: AGE-RELATED MACULAR DEGENERATION
     Dates: start: 20110611
  3. CORINAEL [Concomitant]
  4. RANIBIZUMAB [Suspect]
     Dates: start: 20090818
  5. VISUDYNE [Concomitant]
     Dates: start: 20081101
  6. MUCOSTA [Concomitant]
     Dates: start: 20090611, end: 20110613
  7. DOXAZOSIN MESYLATE [Concomitant]
  8. RANIBIZUMAB [Suspect]
     Dates: start: 20090714
  9. RANIBIZUMAB [Suspect]
     Dates: start: 20100205

REACTIONS (1)
  - DEATH [None]
